FAERS Safety Report 5086012-6 (Version None)
Quarter: 2006Q3

REPORT INFORMATION
  Report Type: 
  Country: None (occurrence: None)
  Receive Date: 20060817
  Receipt Date: 20060809
  Transmission Date: 20061208
  Serious: Yes (Other)
  Sender: FDA-Public Use
  Company Number: 2006092884

PATIENT
  Age: 70 Year
  Sex: Female
  Weight: 45 kg

DRUGS (4)
  1. LIPITOR [Suspect]
     Indication: HYPERCHOLESTEROLAEMIA
     Dosage: 10 MG (1 IN 1 D), ORAL
     Route: 048
     Dates: start: 20040521, end: 20040618
  2. COLESTIMIDE (COLESTILAN) [Concomitant]
  3. EPADEL (ETHYL ICOSAPENTATE) [Concomitant]
  4. TOCOPHERYL NICOTINATE (TOCOPHERYL NICOTINATE) [Concomitant]

REACTIONS (3)
  - BILIARY CIRRHOSIS PRIMARY [None]
  - HEPATIC STEATOSIS [None]
  - HEPATITIS [None]
